FAERS Safety Report 23560859 (Version 1)
Quarter: 2024Q1

REPORT INFORMATION
  Report Type: Spontaneous
  Country: FR (occurrence: FR)
  Receive Date: 20240223
  Receipt Date: 20240223
  Transmission Date: 20240409
  Serious: Yes (Other)
  Sender: FDA-Public Use
  Company Number: None

PATIENT
  Age: 47 Year
  Sex: Female
  Weight: 64 kg

DRUGS (20)
  1. KEYTRUDA [Suspect]
     Active Substance: PEMBROLIZUMAB
     Indication: Breast cancer
     Dosage: 200MG
     Route: 042
     Dates: start: 20231010, end: 20231010
  2. KEYTRUDA [Suspect]
     Active Substance: PEMBROLIZUMAB
     Dosage: 200MG
     Route: 042
     Dates: start: 20231031, end: 20231031
  3. CARBOPLATIN [Suspect]
     Active Substance: CARBOPLATIN
     Indication: Breast cancer
     Dosage: AUC5 C2J8
     Route: 042
     Dates: start: 20231107, end: 20231107
  4. CARBOPLATIN [Suspect]
     Active Substance: CARBOPLATIN
     Dosage: AUC5 C1J1
     Route: 042
     Dates: start: 20231010, end: 20231010
  5. CARBOPLATIN [Suspect]
     Active Substance: CARBOPLATIN
     Dosage: AUC5 C3J1
     Route: 042
     Dates: start: 20231128, end: 20231128
  6. CARBOPLATIN [Suspect]
     Active Substance: CARBOPLATIN
     Dosage: AUC5 C1J8
     Route: 042
     Dates: start: 20231024, end: 20231024
  7. CARBOPLATIN [Suspect]
     Active Substance: CARBOPLATIN
     Dosage: AUC5 C2J1
     Route: 042
     Dates: start: 20231031, end: 20231031
  8. CARBOPLATIN [Suspect]
     Active Substance: CARBOPLATIN
     Dosage: AUC5 C1J8
     Route: 042
     Dates: start: 20231017, end: 20231017
  9. CARBOPLATIN [Suspect]
     Active Substance: CARBOPLATIN
     Dosage: AUC5 C2J15
     Route: 042
     Dates: start: 20231114, end: 20231114
  10. PACLITAXEL [Suspect]
     Active Substance: PACLITAXEL
     Indication: Breast cancer
     Dosage: C3J1
     Route: 042
     Dates: start: 20231128, end: 20231128
  11. PACLITAXEL [Suspect]
     Active Substance: PACLITAXEL
     Dosage: C1J1
     Route: 042
     Dates: start: 20231010, end: 20231010
  12. PACLITAXEL [Suspect]
     Active Substance: PACLITAXEL
     Dosage: C2J15
     Route: 042
     Dates: start: 20231114, end: 20231114
  13. PACLITAXEL [Suspect]
     Active Substance: PACLITAXEL
     Dosage: C1J8
     Route: 042
     Dates: start: 20231017, end: 20231017
  14. PACLITAXEL [Suspect]
     Active Substance: PACLITAXEL
     Dosage: C2J8
     Route: 042
     Dates: start: 20231107, end: 20231107
  15. PACLITAXEL [Suspect]
     Active Substance: PACLITAXEL
     Dosage: C1J15
     Route: 042
     Dates: start: 20231024, end: 20231024
  16. PACLITAXEL [Suspect]
     Active Substance: PACLITAXEL
     Dosage: C2J1
     Route: 042
     Dates: start: 20231031, end: 20231031
  17. XANAX [Concomitant]
     Active Substance: ALPRAZOLAM
     Indication: Product used for unknown indication
     Dosage: UNSPECIFIED
     Route: 042
  18. PRIMPERAN [Concomitant]
     Active Substance: METOCLOPRAMIDE HYDROCHLORIDE
     Indication: Chemotherapy side effect prophylaxis
     Dosage: 10 MILLIGRAM, CYCLICAL
     Route: 042
     Dates: start: 20231010
  19. ONDANSETRON [Concomitant]
     Active Substance: ONDANSETRON
     Indication: Chemotherapy side effect prophylaxis
     Dosage: 16 MILLIGRAM, CYCLICAL
     Route: 042
     Dates: start: 20231010
  20. PREDNISONE [Concomitant]
     Active Substance: PREDNISONE
     Indication: Chemotherapy side effect prophylaxis
     Dosage: 80 MILLIGRAM, CYCLICAL
     Route: 042
     Dates: start: 20231010

REACTIONS (2)
  - Hepatic cytolysis [Recovered/Resolved]
  - Hepatic cytolysis [Recovered/Resolved]

NARRATIVE: CASE EVENT DATE: 20231117
